FAERS Safety Report 23240860 (Version 3)
Quarter: 2025Q1

REPORT INFORMATION
  Report Type: Spontaneous
  Country: US (occurrence: US)
  Receive Date: 20231129
  Receipt Date: 20250212
  Transmission Date: 20250409
  Serious: Yes (Other)
  Sender: AMNEAL
  Company Number: US-AMNEAL PHARMACEUTICALS-2023-AMRX-02848

PATIENT
  Age: 16 Year
  Sex: Female

DRUGS (1)
  1. ISOTRETINOIN [Suspect]
     Active Substance: ISOTRETINOIN
     Indication: Product used for unknown indication
     Dosage: 40 MG CAPSULE, 1 /DAY
     Route: 065
     Dates: start: 20230404, end: 20230801

REACTIONS (3)
  - Abortion induced [Unknown]
  - Maternal exposure during pregnancy [Unknown]
  - Product use issue [Unknown]

NARRATIVE: CASE EVENT DATE: 20230801
